FAERS Safety Report 22644433 (Version 3)
Quarter: 2023Q4

REPORT INFORMATION
  Report Type: Spontaneous
  Country: US (occurrence: US)
  Receive Date: 20230627
  Receipt Date: 20231018
  Transmission Date: 20240109
  Serious: Yes (Hospitalization, Other)
  Sender: FDA-Public Use
  Company Number: US-ASTELLAS-2023US019055

PATIENT
  Age: 81 Year
  Sex: Female

DRUGS (14)
  1. ENFORTUMAB VEDOTIN [Suspect]
     Active Substance: ENFORTUMAB VEDOTIN
     Indication: Bladder cancer
     Dosage: 80 MG, CYCLIC (DAY 1, 8, 21 DAY CYCLE; IV VIA PORT-A-CATH)
     Route: 042
     Dates: start: 20230504
  2. ENFORTUMAB VEDOTIN [Suspect]
     Active Substance: ENFORTUMAB VEDOTIN
     Indication: Metastases to liver
     Dosage: 80 MG, CYCLIC(FIRST CYCLE VIA HER PORT-A-CATH WITHOUT KEYTRUDA)
     Route: 042
     Dates: start: 20230511
  3. ENFORTUMAB VEDOTIN [Suspect]
     Active Substance: ENFORTUMAB VEDOTIN
     Dosage: 80 MG, CYCLIC (SECOND CYCLE VIA HER PORT-A-CATH FOLLOWED BY 200MG KEYTRUDA)
     Route: 042
     Dates: start: 20230525
  4. ENFORTUMAB VEDOTIN [Suspect]
     Active Substance: ENFORTUMAB VEDOTIN
     Dosage: 70 MG, CYCLIC (SECOND CYCLE VIA HER PORT-A-CATH WITHOUT KEYTRUDA)
     Route: 042
     Dates: start: 20230601
  5. ENFORTUMAB VEDOTIN [Suspect]
     Active Substance: ENFORTUMAB VEDOTIN
     Dosage: 70 MG, CYCLIC (FIRST DOSE OF ROUND THREE, VIA HER PORT-A-CATH FOLLOWED BY KEYTRUDA)
     Route: 042
     Dates: start: 20230615
  6. ENFORTUMAB VEDOTIN [Suspect]
     Active Substance: ENFORTUMAB VEDOTIN
     Dosage: 70 MG, CYCLIC (SECOND DOSE OF ROUND THREE, VIA HER PORT-A-CATH WITHOUT KEYTRUDA)
     Route: 042
     Dates: start: 20230622
  7. KEYTRUDA [Suspect]
     Active Substance: PEMBROLIZUMAB
     Indication: Bladder cancer
     Dosage: 200 MG, CYCLIC (FOLLOWING EACH FIRST DOSE OF THE ENFORTUMAB VEDOTIN CYCLE; IV VIA HER PORTA-A-CATH)
     Route: 042
     Dates: start: 20230504
  8. KEYTRUDA [Suspect]
     Active Substance: PEMBROLIZUMAB
     Indication: Metastases to liver
  9. CARVEDILOL [Concomitant]
     Active Substance: CARVEDILOL
     Indication: Product used for unknown indication
     Route: 048
  10. EZETIMIBE [Concomitant]
     Active Substance: EZETIMIBE
     Indication: Product used for unknown indication
     Route: 048
  11. HYDROCHLOROTHIAZIDE [Concomitant]
     Active Substance: HYDROCHLOROTHIAZIDE
     Indication: Product used for unknown indication
     Route: 048
  12. LEVOTHYROXINE [Concomitant]
     Active Substance: LEVOTHYROXINE
     Indication: Product used for unknown indication
     Route: 048
  13. OMEPRAZOLE [Concomitant]
     Active Substance: OMEPRAZOLE
     Indication: Product used for unknown indication
     Route: 048
  14. LIVALO [Concomitant]
     Active Substance: PITAVASTATIN CALCIUM
     Indication: Product used for unknown indication
     Route: 048

REACTIONS (17)
  - Blood magnesium decreased [Recovered/Resolved]
  - Presyncope [Recovered/Resolved]
  - Blood potassium decreased [Recovered/Resolved]
  - Dyspnoea exertional [Recovering/Resolving]
  - Condition aggravated [Recovering/Resolving]
  - Dyspepsia [Recovering/Resolving]
  - Gastrooesophageal reflux disease [Recovering/Resolving]
  - Decreased appetite [Recovered/Resolved]
  - Pain in extremity [Not Recovered/Not Resolved]
  - Ageusia [Recovered/Resolved]
  - Taste disorder [Recovered/Resolved]
  - Cough [Recovering/Resolving]
  - Alopecia [Not Recovered/Not Resolved]
  - Rash [Not Recovered/Not Resolved]
  - Fatigue [Not Recovered/Not Resolved]
  - Product use issue [Unknown]
  - Off label use [Unknown]

NARRATIVE: CASE EVENT DATE: 20230501
